FAERS Safety Report 12100199 (Version 1)
Quarter: 2016Q1

REPORT INFORMATION
  Report Type: Spontaneous
  Country: JP (occurrence: JP)
  Receive Date: 20160222
  Receipt Date: 20160222
  Transmission Date: 20160526
  Serious: Yes (Other)
  Sender: FDA-Public Use
  Company Number: JP-IPSEN BIOPHARMACEUTICALS, INC.-2016-01461

PATIENT
  Sex: Female

DRUGS (3)
  1. CABASER [Concomitant]
     Active Substance: CABERGOLINE
     Indication: PROLACTIN-PRODUCING PITUITARY TUMOUR
     Route: 048
     Dates: start: 20150605, end: 20151231
  2. SOMATULINE AUTOGEL [Suspect]
     Active Substance: LANREOTIDE ACETATE
     Indication: PROLACTIN-PRODUCING PITUITARY TUMOUR
     Dosage: 90 MG
     Route: 058
     Dates: start: 20151106, end: 20151106
  3. SOMATULINE AUTOGEL [Suspect]
     Active Substance: LANREOTIDE ACETATE
     Indication: PRODUCT USE ISSUE
     Dosage: 60 MG
     Route: 058
     Dates: start: 20151204, end: 20151204

REACTIONS (3)
  - Bradycardia [Recovered/Resolved]
  - Faeces pale [Recovered/Resolved]
  - Pituitary tumour removal [Recovered/Resolved]

NARRATIVE: CASE EVENT DATE: 20151106
